FAERS Safety Report 9508698 (Version 2)
Quarter: 2014Q1

REPORT INFORMATION
  Report Type: Spontaneous
  Country: US (occurrence: US)
  Receive Date: 20130909
  Receipt Date: 20140129
  Transmission Date: 20141002
  Serious: Yes (Death)
  Sender: FDA-Public Use
  Company Number: US-GLAXOSMITHKLINE-A1040684A

PATIENT
  Sex: Male

DRUGS (1)
  1. AVANDIA [Suspect]
     Indication: METABOLIC DISORDER
     Dosage: 8MG UNKNOWN
     Route: 065
     Dates: start: 20070101

REACTIONS (1)
  - Death [Fatal]
